FAERS Safety Report 9699162 (Version 1)
Quarter: 2013Q4

REPORT INFORMATION
  Report Type: Spontaneous
  Country: FR (occurrence: FR)
  Receive Date: 20131120
  Receipt Date: 20131120
  Transmission Date: 20140711
  Serious: Yes (Life-Threatening)
  Sender: FDA-Public Use
  Company Number: FR-TEVA-443794ISR

PATIENT
  Age: 5 Year
  Sex: Female
  Weight: 23 kg

DRUGS (1)
  1. ETOPOSIDE TEVA 200MG/10ML [Suspect]
     Indication: ACUTE LYMPHOCYTIC LEUKAEMIA
     Dosage: 150 MG/M2 DAILY;
     Route: 041
     Dates: start: 20131014, end: 20131014

REACTIONS (4)
  - Respiratory disorder [Recovered/Resolved]
  - Throat irritation [Recovered/Resolved]
  - Oxygen saturation decreased [Recovered/Resolved]
  - Bradycardia [Recovered/Resolved]
